FAERS Safety Report 17518066 (Version 1)
Quarter: 2020Q1

REPORT INFORMATION
  Report Type: Spontaneous
  Country: IN (occurrence: IN)
  Receive Date: 20200309
  Receipt Date: 20200309
  Transmission Date: 20200409
  Serious: Yes (Hospitalization, Other)
  Sender: FDA-Public Use
  Company Number: IN-MYLANLABS-2020M1023969

PATIENT
  Age: 3 Year

DRUGS (1)
  1. HYDROCORTISONE. [Suspect]
     Active Substance: HYDROCORTISONE
     Indication: MENINGITIS
     Dosage: 2 MILLIGRAM, BID
     Route: 042

REACTIONS (2)
  - Epidural lipomatosis [Unknown]
  - Spinal cord compression [Unknown]
